FAERS Safety Report 8234688-4 (Version None)
Quarter: 2012Q1

REPORT INFORMATION
  Report Type: 
  Country: None (occurrence: None)
  Receive Date: 20120322
  Receipt Date: 20120314
  Transmission Date: 20120608
  Serious: Yes (Congenital Anomaly)
  Sender: FDA-Public Use
  Company Number: 2012SP014508

PATIENT
  Age: 1 Day
  Sex: Female

DRUGS (2)
  1. ELEVIT [Concomitant]
  2. NUVARING [Suspect]
     Indication: MATERNAL EXPOSURE DURING PREGNANCY
     Dosage: TRPL
     Route: 064

REACTIONS (3)
  - MATERNAL DRUGS AFFECTING FOETUS [None]
  - LIMB MALFORMATION [None]
  - PREGNANCY WITH CONTRACEPTIVE DEVICE [None]
